FAERS Safety Report 4332914-5 (Version None)
Quarter: 2004Q2

REPORT INFORMATION
  Report Type: 
  Country: None (occurrence: None)
  Receive Date: 20040406
  Receipt Date: 20040331
  Transmission Date: 20050107
  Serious: Yes (Hospitalization)
  Sender: FDA-Public Use
  Company Number: 200413673GDDC

PATIENT
  Age: 59 Year
  Sex: Male
  Weight: 58 kg

DRUGS (6)
  1. LANTUS [Suspect]
     Indication: DIABETES MELLITUS
     Dosage: DOSE UNIT: UNITS
     Route: 058
     Dates: start: 20030918
  2. RAMIPRIL [Concomitant]
     Indication: HYPERTENSION
     Route: 048
     Dates: start: 20030918
  3. SIMVASTATIN [Concomitant]
     Indication: HYPERLIPIDAEMIA
     Route: 048
     Dates: start: 20030918
  4. ATENOLOL [Concomitant]
     Indication: HYPERTENSION
     Route: 048
     Dates: start: 20030918
  5. MECLIZINE [Concomitant]
     Route: 048
     Dates: start: 20030918
  6. CEREMIN [Concomitant]
     Route: 048
     Dates: start: 20030918

REACTIONS (3)
  - CHEST DISCOMFORT [None]
  - DIZZINESS [None]
  - MYOCARDIAL ISCHAEMIA [None]
